FAERS Safety Report 8912981 (Version 1)
Quarter: 2012Q4

REPORT INFORMATION
  Report Type: 
  Country: CA (occurrence: CA)
  Receive Date: 20121116
  Receipt Date: 20121116
  Transmission Date: 20130627
  Serious: Yes (Hospitalization, Other)
  Sender: FDA-Public Use
  Company Number: CA-ROCHE-1156022

PATIENT
  Age: 45 Year
  Sex: Female

DRUGS (3)
  1. OMALIZUMAB [Suspect]
     Indication: ASTHMA
     Route: 065
     Dates: start: 20090429
  2. CLOPIDOGREL [Concomitant]
  3. SIMVASTATIN [Concomitant]

REACTIONS (1)
  - Transient ischaemic attack [Unknown]
